FAERS Safety Report 11221293 (Version 1)
Quarter: 2015Q2

REPORT INFORMATION
  Report Type: Report from Study
  Country: US (occurrence: US)
  Receive Date: 20150626
  Receipt Date: 20150626
  Transmission Date: 20150821
  Serious: Yes (Other)
  Sender: FDA-Public Use
  Company Number: US-BIOGENIDEC-2015BI088355

PATIENT
  Age: 48 Year
  Sex: Female

DRUGS (2)
  1. AVONEX [Suspect]
     Active Substance: INTERFERON BETA-1A
     Indication: MULTIPLE SCLEROSIS
     Route: 030
     Dates: start: 2004
  2. CYSTEX [Concomitant]
     Indication: URINARY TRACT INFECTION FUNGAL

REACTIONS (14)
  - Adverse drug reaction [Unknown]
  - Memory impairment [Unknown]
  - Stress [Unknown]
  - Fatigue [Unknown]
  - Hysterectomy [Unknown]
  - Pain [Unknown]
  - Exposure to communicable disease [Unknown]
  - Chills [Unknown]
  - Gastroenteritis viral [Recovered/Resolved]
  - General symptom [Unknown]
  - Pyrexia [Unknown]
  - Hyperthyroidism [Unknown]
  - Hypersomnia [Unknown]
  - Abdominal discomfort [Unknown]

NARRATIVE: CASE EVENT DATE: 201506
